FAERS Safety Report 5669064-1 (Version None)
Quarter: 2008Q1

REPORT INFORMATION
  Report Type: 
  Country: None (occurrence: None)
  Receive Date: 20080317
  Receipt Date: 20080311
  Transmission Date: 20080703
  Serious: Yes (Death, Hospitalization)
  Sender: FDA-Public Use
  Company Number: JP-NOVOPROD-273043

PATIENT
  Sex: Male

DRUGS (1)
  1. NOVORAPID CHU FLEXPEN [Suspect]
     Indication: DRUG USE FOR UNKNOWN INDICATION

REACTIONS (2)
  - FRACTURE [None]
  - INTERSTITIAL LUNG DISEASE [None]
